FAERS Safety Report 9276069 (Version 5)
Quarter: 2014Q3

REPORT INFORMATION
  Report Type: Spontaneous
  Country: US (occurrence: US)
  Receive Date: 20130507
  Receipt Date: 20140801
  Transmission Date: 20150326
  Serious: Yes (Hospitalization)
  Sender: FDA-Public Use
  Company Number: US-BAYER-2013-055719

PATIENT
  Age: 34 Year
  Sex: Female
  Weight: 74.83 kg

DRUGS (1)
  1. MIRENA [Suspect]
     Active Substance: LEVONORGESTREL
     Indication: CONTRACEPTION
     Dosage: 20 MCG/24HR, CONT
     Route: 015
     Dates: start: 201009, end: 201105

REACTIONS (10)
  - Device difficult to use [None]
  - Back pain [None]
  - Device issue [None]
  - Menorrhagia [None]
  - Medical device discomfort [None]
  - Injury [None]
  - Abdominal pain lower [None]
  - Embedded device [None]
  - Dyspareunia [None]
  - Genital haemorrhage [None]
